FAERS Safety Report 5903505-7 (Version None)
Quarter: 2008Q3

REPORT INFORMATION
  Report Type: 
  Country: None (occurrence: None)
  Receive Date: 20080930
  Receipt Date: 20080918
  Transmission Date: 20090109
  Serious: Yes (Death)
  Sender: FDA-Public Use
  Company Number: US-JNJFOC-20080905718

PATIENT
  Age: 11 Month
  Sex: Female

DRUGS (5)
  1. TRAMADOL HCL [Suspect]
     Indication: ACCIDENTAL DRUG INTAKE BY CHILD
     Route: 048
  2. HYDROCODONE BITARTRATE [Suspect]
     Indication: ACCIDENTAL DRUG INTAKE BY CHILD
     Route: 048
  3. AMITRIPTYLINE HCL [Suspect]
     Indication: ACCIDENTAL DRUG INTAKE BY CHILD
     Route: 048
  4. MUSCLE RELAXANT [Suspect]
     Indication: ACCIDENTAL DRUG INTAKE BY CHILD
     Route: 048
  5. ANTICONVULSANT [Suspect]
     Indication: ACCIDENTAL DRUG INTAKE BY CHILD
     Route: 048

REACTIONS (2)
  - ACCIDENTAL DRUG INTAKE BY CHILD [None]
  - CONVULSION [None]
